FAERS Safety Report 6259593-4 (Version None)
Quarter: 2009Q3

REPORT INFORMATION
  Report Type: 
  Country: None (occurrence: None)
  Receive Date: 20090708
  Receipt Date: 20090703
  Transmission Date: 20100115
  Serious: Yes (Life-Threatening)
  Sender: FDA-Public Use
  Company Number: ES-PFIZER INC-2009225113

PATIENT
  Age: 67 Year

DRUGS (10)
  1. CARDYL [Suspect]
     Indication: ACUTE CORONARY SYNDROME
     Dosage: 80 MG, 1X/DAY
     Route: 048
     Dates: start: 20090105, end: 20090202
  2. OMEPRAZOL [Concomitant]
     Indication: PROPHYLAXIS
     Dosage: 20 MG, 1X/DAY
     Route: 048
     Dates: start: 20090105, end: 20090329
  3. PARACETAMOL [Concomitant]
     Indication: ANALGESIA
     Dosage: 1 G, 3X/DAY
     Route: 042
     Dates: start: 20090111, end: 20090329
  4. ALLOPURINOL [Concomitant]
  5. ADIRO [Concomitant]
     Indication: PROPHYLAXIS
     Dosage: 100 MG, 1X/DAY
     Route: 048
     Dates: start: 20090105, end: 20090329
  6. ENOXAPARIN SODIUM [Concomitant]
     Indication: PROPHYLAXIS
     Dosage: 20 MG, 1X/DAY
     Route: 058
     Dates: start: 20090105, end: 20090329
  7. COROPRES [Concomitant]
  8. LANTUS [Concomitant]
  9. NEURONTIN [Concomitant]
  10. NOLOTIL /SPA/ [Concomitant]
     Indication: PROPHYLAXIS
     Dosage: UNK
     Route: 042
     Dates: start: 20090111, end: 20090329

REACTIONS (2)
  - RENAL FAILURE ACUTE [None]
  - RHABDOMYOLYSIS [None]
